FAERS Safety Report 9100442 (Version 1)
Quarter: 2013Q1

REPORT INFORMATION
  Report Type: Spontaneous
  Country: US (occurrence: US)
  Receive Date: 20130215
  Receipt Date: 20130215
  Transmission Date: 20140127
  Serious: Yes (Hospitalization)
  Sender: FDA-Public Use
  Company Number: US-PFIZER INC-2013058336

PATIENT
  Age: 88 Year
  Sex: Female
  Weight: 57.14 kg

DRUGS (7)
  1. REVATIO [Suspect]
     Indication: CARDIAC DISORDER
     Dosage: 20 MG, 2X/DAY
     Route: 048
     Dates: end: 2012
  2. BENICAR [Concomitant]
     Dosage: 25 MG, 1X/DAY
  3. BYSTOLIC [Concomitant]
     Dosage: 2.5 MG, 1X/DAY
  4. EVISTA [Concomitant]
     Dosage: 60 MG, 1X/DAY
  5. LIPITOR [Concomitant]
     Dosage: 20 MG, UNK
  6. NIFEDIPINE [Concomitant]
     Dosage: 90 MG, 1X/DAY
  7. OMEPRAZOLE [Concomitant]
     Dosage: 20 MG, UNK

REACTIONS (5)
  - Pneumonia [Recovered/Resolved]
  - Anaemia [Recovered/Resolved]
  - Dyskinesia [Recovered/Resolved]
  - Hypokinesia [Recovered/Resolved]
  - Gait disturbance [Recovered/Resolved]
